FAERS Safety Report 13534974 (Version 2)
Quarter: 2017Q3

REPORT INFORMATION
  Report Type: Spontaneous
  Country: US (occurrence: US)
  Receive Date: 20170511
  Receipt Date: 20170822
  Transmission Date: 20171127
  Serious: No
  Sender: FDA-Public Use
  Company Number: US-LUNDBECK-DKLU2030168

PATIENT
  Age: 68 Year
  Sex: Female

DRUGS (3)
  1. NORTHERA [Suspect]
     Active Substance: DROXIDOPA
     Indication: ORTHOSTATIC HYPOTENSION
     Route: 048
  2. NORTHERA [Suspect]
     Active Substance: DROXIDOPA
     Route: 048
  3. NORTHERA [Suspect]
     Active Substance: DROXIDOPA
     Indication: AUTONOMIC NEUROPATHY
     Dosage: SCHEDULE B (TITRATION FROM 100 MG TID TO 600 MG TID OVER 11 DAYS)
     Route: 048
     Dates: start: 20170422

REACTIONS (6)
  - Tremor [Unknown]
  - Fatigue [Unknown]
  - Headache [Unknown]
  - Anal incontinence [Unknown]
  - Hypotension [Unknown]
  - Hypertension [Unknown]

NARRATIVE: CASE EVENT DATE: 20170422
